FAERS Safety Report 21066483 (Version 2)
Quarter: 2022Q3

REPORT INFORMATION
  Report Type: Spontaneous
  Country: US (occurrence: US)
  Receive Date: 20220711
  Receipt Date: 20220718
  Transmission Date: 20221026
  Serious: No
  Sender: FDA-Public Use
  Company Number: US-SA-SAC20220708000994

PATIENT
  Sex: Female

DRUGS (1)
  1. DUPIXENT [Suspect]
     Active Substance: DUPILUMAB
     Dosage: 300 MG
     Dates: start: 20220613

REACTIONS (2)
  - Injection site haemorrhage [Unknown]
  - Injection site extravasation [Unknown]

NARRATIVE: CASE EVENT DATE: 20220601
